FAERS Safety Report 18609497 (Version 1)
Quarter: 2020Q4

REPORT INFORMATION
  Report Type: Spontaneous
  Country: US (occurrence: US)
  Receive Date: 20201214
  Receipt Date: 20201214
  Transmission Date: 20210114
  Serious: Yes (Hospitalization)
  Sender: FDA-Public Use
  Company Number: US-ROCHE-2243887

PATIENT
  Sex: Male
  Weight: 61.29 kg

DRUGS (9)
  1. ESBRIET [Suspect]
     Active Substance: PIRFENIDONE
     Indication: IDIOPATHIC PULMONARY FIBROSIS
     Dosage: THREE TABLETS BY MOUTH THREE TIMES A DAY
     Route: 048
     Dates: start: 201811
  2. ESBRIET [Suspect]
     Active Substance: PIRFENIDONE
     Dosage: PRESENT; WITH MEALS
     Route: 048
     Dates: start: 20181112
  3. TYLENOL [Concomitant]
     Active Substance: ACETAMINOPHEN
  4. ESBRIET [Suspect]
     Active Substance: PIRFENIDONE
     Dosage: 3 TABLETS THREE TIMES A DAY
     Route: 048
     Dates: start: 201902
  5. TRIAMTERENE AND HYDROCHLOROTHIAZIDE [Concomitant]
     Active Substance: HYDROCHLOROTHIAZIDE\TRIAMTERENE
  6. ESBRIET [Suspect]
     Active Substance: PIRFENIDONE
     Dosage: TWO TABLETS, THREE TIMES A DAY WITH MEALS
     Route: 048
  7. ESBRIET [Suspect]
     Active Substance: PIRFENIDONE
     Dosage: 3 TABLETS
     Route: 048
     Dates: start: 20200924
  8. IRBESARTAN. [Concomitant]
     Active Substance: IRBESARTAN
     Indication: BLOOD PRESSURE MEASUREMENT
     Route: 048
  9. ESBRIET [Suspect]
     Active Substance: PIRFENIDONE
     Dosage: 1 TABLET THREE TIMES A DAY
     Route: 048
     Dates: start: 2019

REACTIONS (13)
  - Constipation [Unknown]
  - Product dose omission issue [Unknown]
  - Abdominal discomfort [Unknown]
  - Dizziness [Unknown]
  - Haemorrhoids [Unknown]
  - Gastric disorder [Recovered/Resolved]
  - Body height decreased [Not Recovered/Not Resolved]
  - Abdominal pain upper [Not Recovered/Not Resolved]
  - Weight decreased [Not Recovered/Not Resolved]
  - Decreased appetite [Not Recovered/Not Resolved]
  - Dyspepsia [Recovered/Resolved]
  - Dyspepsia [Recovered/Resolved with Sequelae]
  - Dizziness [Unknown]

NARRATIVE: CASE EVENT DATE: 2019
